FAERS Safety Report 25948952 (Version 1)
Quarter: 2025Q4

REPORT INFORMATION
  Report Type: Spontaneous
  Country: US (occurrence: None)
  Receive Date: 20251021
  Receipt Date: 20251021
  Transmission Date: 20260118
  Serious: Yes (Hospitalization)
  Sender: FDA-CTU
  Company Number: None

PATIENT
  Sex: Female
  Weight: 52.2 kg

DRUGS (5)
  1. WINREVAIR [Suspect]
     Active Substance: SOTATERCEPT-CSRK
     Indication: Pulmonary arterial hypertension
     Dosage: 0.3 ML EVERY 3 WEEKS  SUBCUTANEOUS
     Route: 058
     Dates: start: 20250923
  2. AMBRISENTAN [Concomitant]
     Active Substance: AMBRISENTAN
  3. REMUNITY CART W/FILL AID [Concomitant]
  4. REMODULIN [Concomitant]
     Active Substance: TREPROSTINIL
  5. TADALAFIL [Concomitant]
     Active Substance: TADALAFIL

REACTIONS (1)
  - Haemoptysis [None]
